FAERS Safety Report 7665803-9 (Version None)
Quarter: 2011Q3

REPORT INFORMATION
  Report Type: 
  Country: None (occurrence: None)
  Receive Date: 20110806
  Receipt Date: 20110421
  Transmission Date: 20111222
  Serious: No
  Sender: FDA-Public Use
  Company Number: US-ABBOTT-11P-163-0720935-00

PATIENT
  Sex: Female

DRUGS (3)
  1. NIASPAN [Suspect]
     Dosage: AT BEDTIME
  2. NIASPAN [Suspect]
     Indication: BLOOD CHOLESTEROL ABNORMAL
     Dosage: AT BEDTIME
     Dates: start: 20090101
  3. PRAVASTATIN [Concomitant]
     Indication: PRODUCT USED FOR UNKNOWN INDICATION
     Dosage: 1/2 TABLET

REACTIONS (3)
  - PRURITUS [None]
  - NAUSEA [None]
  - VOMITING [None]
